FAERS Safety Report 20029124 (Version 27)
Quarter: 2024Q3

REPORT INFORMATION
  Report Type: Spontaneous
  Country: JP (occurrence: JP)
  Receive Date: 20211103
  Receipt Date: 20240710
  Transmission Date: 20241016
  Serious: Yes (Hospitalization, Other)
  Sender: BRISTOL MYERS SQUIBB
  Company Number: JP-ONO-2021JP026924

PATIENT
  Age: 38 Year
  Sex: Male

DRUGS (4)
  1. YERVOY [Suspect]
     Active Substance: IPILIMUMAB
     Indication: Non-small cell lung cancer recurrent
     Route: 041
  2. OPDIVO [Suspect]
     Active Substance: NIVOLUMAB
     Indication: Non-small cell lung cancer recurrent
     Route: 041
  3. TAXOL [Concomitant]
     Active Substance: PACLITAXEL
     Indication: Non-small cell lung cancer recurrent
  4. CARBOPLATIN [Concomitant]
     Active Substance: CARBOPLATIN
     Indication: Non-small cell lung cancer recurrent

REACTIONS (8)
  - Immune-mediated hepatitis [Unknown]
  - Chest pain [Unknown]
  - Malignant neoplasm progression [Unknown]
  - Cytokine release syndrome [Unknown]
  - Immune-mediated lung disease [Unknown]
  - Immune-mediated dermatitis [Unknown]
  - Pyrexia [Unknown]
  - Arthralgia [Unknown]
